FAERS Safety Report 6289187-6 (Version None)
Quarter: 2009Q3

REPORT INFORMATION
  Report Type: 
  Country: None (occurrence: None)
  Receive Date: 20090728
  Receipt Date: 20090717
  Transmission Date: 20100115
  Serious: Yes (Hospitalization, Disabling, Other)
  Sender: FDA-Public Use
  Company Number: 2009AP002941

PATIENT
  Age: 50 Year
  Sex: Female

DRUGS (4)
  1. PAROXETINE HCL [Suspect]
     Indication: DEPRESSION
     Dosage: 60 MG, PO, 20 MG,
     Route: 048
     Dates: start: 20080801, end: 20090501
  2. PAROXETINE HCL [Suspect]
     Indication: DEPRESSION
     Dosage: 60 MG, PO, 20 MG,
     Route: 048
     Dates: start: 20090501
  3. DEPAKOTE [Suspect]
     Indication: MOOD SWINGS
     Dosage: 750 MG, BID,
     Dates: start: 20080801, end: 20090501
  4. LITHIUM CARBONATE [Concomitant]

REACTIONS (4)
  - ABASIA [None]
  - ASTHENIA [None]
  - HYPONATRAEMIA [None]
  - TREMOR [None]
